FAERS Safety Report 7279996-9 (Version None)
Quarter: 2011Q1

REPORT INFORMATION
  Report Type: 
  Country: None (occurrence: None)
  Receive Date: 20110208
  Receipt Date: 20110205
  Transmission Date: 20110831
  Serious: No
  Sender: FDA-Public Use
  Company Number: US-PFIZER INC-2011026362

PATIENT
  Sex: Female
  Weight: 49.887 kg

DRUGS (5)
  1. ADVIL [Suspect]
     Indication: BACK PAIN
  2. MULTIVITAMIN [Concomitant]
     Dosage: UNK
  3. ADVIL [Suspect]
     Indication: INTERVERTEBRAL DISC PROTRUSION
     Dosage: UNK, DAILY
     Route: 048
     Dates: start: 20101001, end: 20110203
  4. ADVIL [Suspect]
     Indication: ARTHRALGIA
  5. SYNTHROID [Concomitant]
     Indication: HYPOTHYROIDISM
     Dosage: UNK

REACTIONS (2)
  - PRURITUS [None]
  - RASH GENERALISED [None]
